FAERS Safety Report 25766207 (Version 1)
Quarter: 2025Q3

REPORT INFORMATION
  Report Type: Spontaneous
  Country: US (occurrence: None)
  Receive Date: 20250904
  Receipt Date: 20250904
  Transmission Date: 20251021
  Serious: No
  Sender: FDA-CTU
  Company Number: None

PATIENT
  Age: 69 Year
  Sex: Male

DRUGS (1)
  1. LENALIDOMIDE [Suspect]
     Active Substance: LENALIDOMIDE
     Indication: Plasma cell myeloma
     Dosage: 25MG QD ORAL ?
     Route: 048
     Dates: start: 20250819

REACTIONS (3)
  - Peripheral swelling [None]
  - Eye pain [None]
  - Pain in extremity [None]

NARRATIVE: CASE EVENT DATE: 20250904
